FAERS Safety Report 8421027-9 (Version None)
Quarter: 2012Q2

REPORT INFORMATION
  Report Type: 
  Country: None (occurrence: None)
  Receive Date: 20120608
  Receipt Date: 20120529
  Transmission Date: 20120825
  Serious: Yes (Other)
  Sender: FDA-Public Use
  Company Number: BR-JNJFOC-20120600571

PATIENT
  Sex: Male
  Weight: 47 kg

DRUGS (3)
  1. REMICADE [Suspect]
     Indication: CROHN'S DISEASE
     Route: 042
     Dates: start: 20110101, end: 20120101
  2. AZATHIOPRINE [Concomitant]
     Indication: CROHN'S DISEASE
     Route: 065
     Dates: start: 20110101
  3. MESALAMINE [Concomitant]
     Indication: CROHN'S DISEASE
     Route: 065
     Dates: start: 20110101

REACTIONS (9)
  - MUSCULOSKELETAL PAIN [None]
  - DYSPNOEA [None]
  - BLOOD PRESSURE INCREASED [None]
  - INFUSION RELATED REACTION [None]
  - TREMOR [None]
  - TACHYCARDIA [None]
  - ANAEMIA [None]
  - FEELING COLD [None]
  - URTICARIA [None]
